FAERS Safety Report 8494940-4 (Version None)
Quarter: 2012Q3

REPORT INFORMATION
  Report Type: 
  Country: None (occurrence: None)
  Receive Date: 20120709
  Receipt Date: 20120702
  Transmission Date: 20120928
  Serious: Yes (Hospitalization, Disabling, Other)
  Sender: FDA-Public Use
  Company Number: US-MSD-1202USA03517

PATIENT

DRUGS (4)
  1. BONIVA [Suspect]
     Indication: OSTEOPENIA
  2. BONIVA [Suspect]
     Indication: OSTEOPOROSIS
     Dates: start: 20000101, end: 20100601
  3. FOSAMAX [Suspect]
     Indication: OSTEOPOROSIS
     Dosage: 70 MG, UNK
     Route: 048
     Dates: start: 19980101, end: 20100601
  4. FOSAMAX [Suspect]
     Indication: OSTEOPENIA

REACTIONS (5)
  - LOW TURNOVER OSTEOPATHY [None]
  - INJURY [None]
  - STRESS FRACTURE [None]
  - PAIN [None]
  - FEMUR FRACTURE [None]
